FAERS Safety Report 11774204 (Version 1)
Quarter: 2015Q4

REPORT INFORMATION
  Report Type: Report from Study
  Country: IL (occurrence: IL)
  Receive Date: 20151124
  Receipt Date: 20151124
  Transmission Date: 20160304
  Serious: Yes (Other)
  Sender: FDA-Public Use
  Company Number: PHHY2015IL152844

PATIENT
  Age: 52 Year
  Sex: Male

DRUGS (1)
  1. GILENYA [Suspect]
     Active Substance: FINGOLIMOD HYDROCHLORIDE
     Indication: MULTIPLE SCLEROSIS
     Dosage: 0.5 MG, QD
     Route: 048
     Dates: start: 20131229

REACTIONS (5)
  - Fall [Unknown]
  - Contusion [Recovering/Resolving]
  - Upper limb fracture [Unknown]
  - Accident [Unknown]
  - Injury [Unknown]

NARRATIVE: CASE EVENT DATE: 20151115
